FAERS Safety Report 8411353-1 (Version None)
Quarter: 2012Q2

REPORT INFORMATION
  Report Type: 
  Country: None (occurrence: None)
  Receive Date: 20120531
  Receipt Date: 20120531
  Transmission Date: 20120825
  Serious: No
  Sender: FDA-Public Use
  Company Number: None

PATIENT

DRUGS (2)
  1. TRAZODONE HCL [Suspect]
     Indication: SOMNOLENCE
     Dosage: 100MG NIGHT 1 DOSE
     Dates: start: 20120327
  2. TRAZODONE HCL [Suspect]
     Indication: DEPRESSION
     Dosage: 100MG NIGHT 1 DOSE
     Dates: start: 20120327

REACTIONS (8)
  - DIZZINESS [None]
  - NERVOUSNESS [None]
  - DEPRESSION [None]
  - FLUSHING [None]
  - FEELING ABNORMAL [None]
  - NIGHTMARE [None]
  - DIARRHOEA [None]
  - GAIT DISTURBANCE [None]
